FAERS Safety Report 4710610-X (Version None)
Quarter: 2005Q3

REPORT INFORMATION
  Report Type: 
  Country: None (occurrence: None)
  Receive Date: 20050707
  Receipt Date: 20050621
  Transmission Date: 20060218
  Serious: Yes (Hospitalization)
  Sender: FDA-Public Use
  Company Number: US_0502111699

PATIENT
  Age: 76 Year
  Sex: Female

DRUGS (4)
  1. FORTEO [Suspect]
     Indication: OSTEOPOROSIS
     Dosage: 20 UG DAY
     Dates: start: 20041227
  2. TRAZADONE (TRAZODONE) [Concomitant]
  3. IXEL (MILNACIPRAN) [Concomitant]
  4. COZAAR [Concomitant]

REACTIONS (2)
  - DIZZINESS [None]
  - URINARY INCONTINENCE [None]
